FAERS Safety Report 6719791-X (Version None)
Quarter: 2010Q2

REPORT INFORMATION
  Report Type: 
  Country: None (occurrence: None)
  Receive Date: 20100511
  Receipt Date: 20100426
  Transmission Date: 20101027
  Serious: Yes (Hospitalization)
  Sender: FDA-Public Use
  Company Number: B0652114A

PATIENT
  Age: 50 Year
  Sex: Female

DRUGS (4)
  1. CARVEDILOL [Suspect]
     Dosage: 6.25MG PER DAY
     Route: 048
  2. LORNOXICAM [Suspect]
     Dosage: 4MG PER DAY
     Route: 048
     Dates: start: 20090706
  3. FUROSEMIDE [Suspect]
     Dosage: 40MG PER DAY
     Route: 048
     Dates: start: 20090706
  4. ENALAPRIL MALEATE [Suspect]
     Dosage: 10MG PER DAY
     Route: 048

REACTIONS (2)
  - DRUG INTERACTION [None]
  - RENAL FAILURE ACUTE [None]
